FAERS Safety Report 24372669 (Version 1)
Quarter: 2024Q3

REPORT INFORMATION
  Report Type: Spontaneous
  Country: CA (occurrence: CA)
  Receive Date: 20240927
  Receipt Date: 20240927
  Transmission Date: 20241017
  Serious: Yes (Life-Threatening, Hospitalization)
  Sender: FRESENIUS KABI
  Company Number: CA-FreseniusKabi-FK202414281

PATIENT
  Age: 2 Year
  Sex: Male

DRUGS (4)
  1. ETOPOSIDE [Suspect]
     Active Substance: ETOPOSIDE
     Indication: Burkitt^s lymphoma
     Dosage: ROUTE: INTRAVENOUS?FORM: NOT SPECIFIED
  2. CYTARABINE [Suspect]
     Active Substance: CYTARABINE
     Indication: Product used for unknown indication
     Dosage: POWDER FOR SOLUTION INTRATHECAL
  3. CYTARABINE [Suspect]
     Active Substance: CYTARABINE
     Indication: Burkitt^s lymphoma
     Dosage: POWDER FOR SOLUTION INTRATHECAL?ROUTE: INTRAVENOUS
     Route: 042
  4. RITUXIMAB [Suspect]
     Active Substance: RITUXIMAB
     Indication: Product used for unknown indication
     Dosage: ROUTE: UNKNOWN

REACTIONS (2)
  - Febrile neutropenia [Recovered/Resolved]
  - Off label use [Recovered/Resolved]
